FAERS Safety Report 16780791 (Version 1)
Quarter: 2019Q3

REPORT INFORMATION
  Report Type: Spontaneous
  Country: JP (occurrence: JP)
  Receive Date: 20190906
  Receipt Date: 20190906
  Transmission Date: 20191005
  Serious: Yes (Life-Threatening, Hospitalization, Other)
  Sender: FDA-Public Use
  Company Number: JP-OXFORD PHARMACEUTICALS, LLC-2019OXF00124

PATIENT
  Age: 20 Year
  Sex: Female

DRUGS (3)
  1. ASPIRIN. [Suspect]
     Active Substance: ASPIRIN
     Dosage: 52.8 G (160 TABLETS)
     Route: 065
  2. RISPERIDONE. [Suspect]
     Active Substance: RISPERIDONE
     Dosage: 93 TABLETS (122 MG
     Route: 065
  3. FLUNITRAZEPAM [Suspect]
     Active Substance: FLUNITRAZEPAM
     Dosage: 50 MG (25 TABLETS)
     Route: 065

REACTIONS (9)
  - Respiratory depression [Unknown]
  - Electrocardiogram QT prolonged [Unknown]
  - Sinus tachycardia [Unknown]
  - Overdose [Recovered/Resolved]
  - Blood pressure decreased [Unknown]
  - Cardiac arrest [Recovered/Resolved]
  - Loss of consciousness [Unknown]
  - Electrocardiogram QRS complex prolonged [Unknown]
  - Bradycardia [Unknown]
